FAERS Safety Report 10173056 (Version 3)
Quarter: 2014Q4

REPORT INFORMATION
  Report Type: Spontaneous
  Country: US (occurrence: US)
  Receive Date: 20140515
  Receipt Date: 20141010
  Transmission Date: 20150528
  Serious: Yes (Hospitalization)
  Sender: FDA-Public Use
  Company Number: US-BAYER-2014-071909

PATIENT
  Age: 30 Year
  Sex: Female
  Weight: 74.83 kg

DRUGS (23)
  1. YAZ [Suspect]
     Active Substance: DROSPIRENONE\ETHINYL ESTRADIOL
     Indication: ACNE
  2. BENADRYL [Concomitant]
     Active Substance: DIPHENHYDRAMINE HYDROCHLORIDE
  3. BENZOYL PEROXIDE. [Concomitant]
     Active Substance: BENZOYL PEROXIDE
  4. BUTALBITAL [Concomitant]
     Active Substance: BUTALBITAL
  5. ZOFRAN [Concomitant]
     Active Substance: ONDANSETRON HYDROCHLORIDE
  6. BUTALBITAL, ACETAMINOPHEN, CAFFEINE [Concomitant]
     Active Substance: ACETAMINOPHEN\BUTALBITAL\CAFFEINE
     Dosage: 50-325 ONE TAB EVERY 4 HOURS AS NEEDED PRN
     Route: 048
  7. MOTRIN [Concomitant]
     Active Substance: IBUPROFEN
  8. TORADOL [Concomitant]
     Active Substance: KETOROLAC TROMETHAMINE
  9. MEDROL [Concomitant]
     Active Substance: METHYLPREDNISOLONE
  10. NORTRIPTYLINE [Concomitant]
     Active Substance: NORTRIPTYLINE
     Indication: MIGRAINE PROPHYLAXIS
  11. MELATONIN [Concomitant]
     Active Substance: MELATONIN
  12. YAZ [Suspect]
     Active Substance: DROSPIRENONE\ETHINYL ESTRADIOL
     Indication: CONTRACEPTION
     Dosage: UNK
     Route: 048
     Dates: start: 201101, end: 201103
  13. REGLAN [Concomitant]
     Active Substance: METOCLOPRAMIDE HYDROCHLORIDE
  14. IBUPROFEN. [Concomitant]
     Active Substance: IBUPROFEN
  15. VICODIN [Concomitant]
     Active Substance: ACETAMINOPHEN\HYDROCODONE BITARTRATE
  16. ADVAIR DISKUS [Concomitant]
     Active Substance: FLUTICASONE PROPIONATE\SALMETEROL XINAFOATE
  17. METHYLPREDNISOLONE. [Concomitant]
     Active Substance: METHYLPREDNISOLONE
     Dosage: 4 MG, DOSE PACK
     Dates: start: 20110312
  18. FIORICET [Concomitant]
     Active Substance: ACETAMINOPHEN\BUTALBITAL\CAFFEINE
  19. SUMATRIPTAN. [Concomitant]
     Active Substance: SUMATRIPTAN
  20. ATIVAN [Concomitant]
     Active Substance: LORAZEPAM
  21. ROBAXIN [Concomitant]
     Active Substance: METHOCARBAMOL
  22. ALBUTEROL. [Concomitant]
     Active Substance: ALBUTEROL
  23. ONDANSETRON HYDROCHLORIDE. [Concomitant]
     Active Substance: ONDANSETRON HYDROCHLORIDE
     Dosage: 8 MG, UNK
     Dates: start: 20110306

REACTIONS (5)
  - Jugular vein thrombosis [None]
  - Transverse sinus thrombosis [None]
  - Pain [None]
  - Injury [None]
  - Intracranial venous sinus thrombosis [None]

NARRATIVE: CASE EVENT DATE: 201103
